FAERS Safety Report 6069254-2 (Version None)
Quarter: 2009Q1

REPORT INFORMATION
  Report Type: 
  Country: None (occurrence: None)
  Receive Date: 20090206
  Receipt Date: 20081008
  Transmission Date: 20090719
  Serious: Yes (Hospitalization, Other)
  Sender: FDA-Public Use
  Company Number: BR-JNJCH-2008020860

PATIENT
  Sex: Female
  Weight: 52 kg

DRUGS (2)
  1. COOL MINT LISTERINE [Suspect]
     Indication: DENTAL DISORDER PROPHYLAXIS
     Dosage: TEXT:^ONE SCREW TOP^, ONCE DAILY
     Route: 048
     Dates: start: 20080803, end: 20080807
  2. LEVONORGESTREL AND ETHINYL ESTRADIOL [Concomitant]
     Indication: CONTRACEPTION
     Dosage: TEXT:UNSPECIFIED
     Route: 065

REACTIONS (7)
  - BLISTER [None]
  - BURNING SENSATION [None]
  - DRUG TOXICITY [None]
  - ERYTHEMA [None]
  - EXPIRED DRUG ADMINISTERED [None]
  - EYE DISORDER [None]
  - SWELLING [None]
